FAERS Safety Report 25356493 (Version 1)
Quarter: 2025Q2

REPORT INFORMATION
  Report Type: Other
  Country: JP (occurrence: JP)
  Receive Date: 20250526
  Receipt Date: 20250526
  Transmission Date: 20250716
  Serious: Yes (Hospitalization, Other)
  Sender: ANI
  Company Number: JP-ANIPHARMA-022889

PATIENT
  Age: 52 Year
  Sex: Male

DRUGS (6)
  1. OXYCODONE [Suspect]
     Active Substance: OXYCODONE
     Indication: Back pain
  2. AMITRIPTYLINE [Suspect]
     Active Substance: AMITRIPTYLINE
     Indication: Intercostal neuralgia
  3. MIROGABALIN [Concomitant]
     Active Substance: MIROGABALIN
     Indication: Back pain
  4. AMITRIPTYLINE [Suspect]
     Active Substance: AMITRIPTYLINE
     Indication: Back pain
  5. AMITRIPTYLINE [Suspect]
     Active Substance: AMITRIPTYLINE
     Indication: Back pain
  6. OXYCODONE [Suspect]
     Active Substance: OXYCODONE
     Indication: Back pain

REACTIONS (3)
  - Serotonin syndrome [Recovered/Resolved]
  - Drug interaction [Unknown]
  - Drug ineffective [Unknown]
